FAERS Safety Report 12072534 (Version 1)
Quarter: 2016Q1

REPORT INFORMATION
  Report Type: Spontaneous
  Country: CN (occurrence: CN)
  Receive Date: 20160212
  Receipt Date: 20160212
  Transmission Date: 20160526
  Serious: Yes (Hospitalization, Other)
  Sender: FDA-Public Use
  Company Number: CN-WATSON-2016-02990

PATIENT
  Age: 63 Year
  Sex: Male

DRUGS (6)
  1. DEXAMETHASONE (UNKNOWN) [Suspect]
     Active Substance: DEXAMETHASONE
     Dosage: 20 MG, CYCLICAL, 1 CYCLE (ON DAYS 1, 4, 8, AND 11)
     Route: 065
  2. DEXAMETHASONE (UNKNOWN) [Suspect]
     Active Substance: DEXAMETHASONE
     Dosage: 20 MG, CYCLICAL (ON DAYS 1, 2, 6, 7, 11, 12, 16, AND 17)
     Route: 065
  3. BORTEZOMIB (UNKNOWN) [Suspect]
     Active Substance: BORTEZOMIB
     Dosage: 2.4 MG, CYCLICAL (ON DAYS 1, 6, 11,AND 16)
     Route: 065
  4. DEXAMETHASONE (UNKNOWN) [Suspect]
     Active Substance: DEXAMETHASONE
     Indication: PLASMA CELL MYELOMA
     Dosage: 10 MG, CYCLICAL, 2 CYCLES (ON DAYS 1, 4, 8, AND 11)
     Route: 065
  5. BORTEZOMIB (UNKNOWN) [Suspect]
     Active Substance: BORTEZOMIB
     Indication: PLASMA CELL MYELOMA
     Dosage: 2.6 MG, CYCLICAL, 2 CYCLES (ON DAYS 1, 4, 8, AND 11)
     Route: 065
  6. BORTEZOMIB (UNKNOWN) [Suspect]
     Active Substance: BORTEZOMIB
     Dosage: 1.75 MG, CYCLICAL, 1 CYCLE (ON DAYS 1, 4, 8, AND 11)
     Route: 065

REACTIONS (1)
  - Rhabdomyolysis [Recovering/Resolving]
